FAERS Safety Report 5210389-1 (Version None)
Quarter: 2007Q1

REPORT INFORMATION
  Report Type: 
  Country: None (occurrence: None)
  Receive Date: 20070117
  Receipt Date: 20070110
  Transmission Date: 20070707
  Serious: Yes (Other)
  Sender: FDA-Public Use
  Company Number: 971223-008013562

PATIENT
  Age: 4 Month
  Sex: Female

DRUGS (10)
  1. HALDOL [Suspect]
     Indication: DRUG USE FOR UNKNOWN INDICATION
     Route: 015
  2. FLUNITRAZEPAM [Suspect]
     Indication: DRUG USE FOR UNKNOWN INDICATION
     Route: 015
  3. DIAMORPHINE [Suspect]
     Indication: DRUG USE FOR UNKNOWN INDICATION
     Route: 015
  4. LEVOMETHADONE [Suspect]
     Route: 015
  5. LEVOMETHADONE [Suspect]
     Indication: DRUG USE FOR UNKNOWN INDICATION
     Route: 015
  6. BIFERIDEN [Suspect]
     Indication: DRUG USE FOR UNKNOWN INDICATION
     Route: 015
  7. LORAZEPAM [Suspect]
     Indication: DRUG USE FOR UNKNOWN INDICATION
     Route: 015
  8. CODEINE SUL TAB [Suspect]
     Indication: DRUG USE FOR UNKNOWN INDICATION
     Route: 015
  9. AMITRIPTYLINE HCL [Suspect]
     Indication: DRUG USE FOR UNKNOWN INDICATION
     Route: 015
  10. UNKNOWN [Concomitant]

REACTIONS (3)
  - PSYCHOMOTOR SKILLS IMPAIRED [None]
  - SMALL FOR DATES BABY [None]
  - STRABISMUS [None]
